FAERS Safety Report 7978177-0 (Version None)
Quarter: 2011Q4

REPORT INFORMATION
  Report Type: 
  Country: None (occurrence: None)
  Receive Date: 20111202
  Receipt Date: 20111124
  Transmission Date: 20120403
  Serious: Yes (Other)
  Sender: FDA-Public Use
  Company Number: 2011SP055228

PATIENT
  Age: 25 Year
  Sex: Female
  Weight: 77 kg

DRUGS (1)
  1. NUVARING [Suspect]
     Indication: CONTRACEPTION
     Dosage: QM; VAG
     Route: 067
     Dates: start: 20070101

REACTIONS (7)
  - SLEEP DISORDER [None]
  - INAPPROPRIATE SCHEDULE OF DRUG ADMINISTRATION [None]
  - METRORRHAGIA [None]
  - INSULIN RESISTANCE [None]
  - DEVICE EXPULSION [None]
  - EPILEPSY [None]
  - INAPPROPRIATE AFFECT [None]
